FAERS Safety Report 16056008 (Version 8)
Quarter: 2019Q4

REPORT INFORMATION
  Report Type: Spontaneous
  Country: US (occurrence: US)
  Receive Date: 20190311
  Receipt Date: 20191206
  Transmission Date: 20200122
  Serious: Yes (Other)
  Sender: FDA-Public Use
  Company Number: US-GLAXOSMITHKLINE-US2019GSK043523

PATIENT
  Sex: Male

DRUGS (2)
  1. PANTOPRAZOLE [Suspect]
     Active Substance: PANTOPRAZOLE
     Indication: GASTROOESOPHAGEAL REFLUX DISEASE
     Dosage: UNK
     Route: 065
  2. PREVACID [Suspect]
     Active Substance: LANSOPRAZOLE
     Indication: GASTROOESOPHAGEAL REFLUX DISEASE
     Dosage: 30 MG, QD
     Route: 065

REACTIONS (17)
  - End stage renal disease [Unknown]
  - Nocturia [Unknown]
  - Ureteral disorder [Unknown]
  - Hypertensive nephropathy [Unknown]
  - Renal disorder [Unknown]
  - Chronic kidney disease [Unknown]
  - Renal impairment [Unknown]
  - Nephropathy [Unknown]
  - Renal failure [Unknown]
  - Acute kidney injury [Unknown]
  - Urine abnormality [Unknown]
  - Diabetic nephropathy [Unknown]
  - Nephrocalcinosis [Unknown]
  - Polyuria [Unknown]
  - Proteinuria [Unknown]
  - Nephrolithiasis [Unknown]
  - Nephrogenic anaemia [Unknown]
